FAERS Safety Report 4868191-6 (Version None)
Quarter: 2005Q4

REPORT INFORMATION
  Report Type: 
  Country: None (occurrence: None)
  Receive Date: 20051229
  Receipt Date: 20051006
  Transmission Date: 20060501
  Serious: Yes (Death)
  Sender: FDA-Public Use
  Company Number: US-BRISTOL-MYERS SQUIBB COMPANY-13137542

PATIENT
  Age: 71 Year
  Sex: Female

DRUGS (8)
  1. PRAVACHOL [Suspect]
     Indication: HYPERCHOLESTEROLAEMIA
     Route: 048
     Dates: start: 20050601, end: 20050623
  2. PLAVIX [Suspect]
     Indication: CORONARY ARTERY DISEASE
     Route: 048
     Dates: start: 20050601, end: 20050701
  3. LASIX [Concomitant]
  4. IMODIUM [Concomitant]
  5. MAALOX FAST BLOCKER [Concomitant]
  6. ZOLOFT [Concomitant]
  7. DIAZEPAM [Concomitant]
  8. LORTAB [Concomitant]

REACTIONS (1)
  - DEATH [None]
